FAERS Safety Report 5304316-6 (Version None)
Quarter: 2007Q2

REPORT INFORMATION
  Report Type: 
  Country: None (occurrence: None)
  Receive Date: 20070423
  Receipt Date: 20070411
  Transmission Date: 20071010
  Serious: Yes (Other)
  Sender: FDA-Public Use
  Company Number: PHBS2007HU06463

PATIENT
  Age: 67 Year

DRUGS (2)
  1. LESCOL XL [Suspect]
     Dosage: 80 MG/D
     Route: 048
  2. SYNCUMAR [Concomitant]

REACTIONS (3)
  - DIARRHOEA [None]
  - JAUNDICE [None]
  - NAUSEA [None]
